FAERS Safety Report 23604626 (Version 1)
Quarter: 2024Q1

REPORT INFORMATION
  Report Type: Report from Study
  Country: US (occurrence: None)
  Receive Date: 20240307
  Receipt Date: 20240307
  Transmission Date: 20240410
  Serious: Yes (Other)
  Sender: FDA-Public Use
  Company Number: 2024A050553

PATIENT
  Sex: Female

DRUGS (1)
  1. LYNPARZA [Suspect]
     Active Substance: OLAPARIB
     Indication: Breast cancer female
     Route: 048
     Dates: start: 20230511

REACTIONS (7)
  - Illness [Unknown]
  - Cough [Unknown]
  - Wheezing [Unknown]
  - Oxygen saturation decreased [Unknown]
  - Pneumonitis [Unknown]
  - Intentional product use issue [Unknown]
  - Drug intolerance [Unknown]
